FAERS Safety Report 17274102 (Version 1)
Quarter: 2020Q1

REPORT INFORMATION
  Report Type: Spontaneous
  Country: CA (occurrence: CA)
  Receive Date: 20200115
  Receipt Date: 20200115
  Transmission Date: 20200409
  Serious: Yes (Hospitalization)
  Sender: FDA-Public Use
  Company Number: CA-JACOBUS PHARMACEUTICAL COMPANY, INC.-2079066

PATIENT
  Age: 54 Year
  Sex: Male

DRUGS (9)
  1. TACROLIMUS. [Suspect]
     Active Substance: TACROLIMUS
  2. DAPSONE. [Suspect]
     Active Substance: DAPSONE
     Indication: OFF LABEL USE
     Route: 048
  3. AMPICILLIN SODIUM. [Concomitant]
     Active Substance: AMPICILLIN SODIUM
  4. MYCOPHENOLIC ACID. [Suspect]
     Active Substance: MYCOPHENOLIC ACID
  5. SIROLIMUS. [Suspect]
     Active Substance: SIROLIMUS
  6. CEFTRIAXONE. [Concomitant]
     Active Substance: CEFTRIAXONE
  7. VANCOMYCIN HYDROCHLORIDE. [Concomitant]
     Active Substance: VANCOMYCIN HYDROCHLORIDE
  8. PREDNISONE. [Suspect]
     Active Substance: PREDNISONE
  9. PENICILLIN V POTASSIUM. [Concomitant]
     Active Substance: PENICILLIN V POTASSIUM

REACTIONS (7)
  - Photophobia [None]
  - Brain abscess [Unknown]
  - Leukocytosis [Unknown]
  - Pleocytosis [None]
  - Pyrexia [None]
  - Headache [None]
  - Nocardiosis [Unknown]
